FAERS Safety Report 6372369-2 (Version None)
Quarter: 2009Q3

REPORT INFORMATION
  Report Type: 
  Country: None (occurrence: None)
  Receive Date: 20090924
  Receipt Date: 20081016
  Transmission Date: 20100115
  Serious: No
  Sender: FDA-Public Use
  Company Number: US-ASTRAZENECA-2008UW22777

PATIENT
  Age: 307 Month
  Sex: Female

DRUGS (4)
  1. SEROQUEL [Suspect]
     Indication: ANXIETY
     Dosage: 100MG - 500MG
     Route: 048
     Dates: start: 20040101, end: 20070101
  2. SEROQUEL [Suspect]
     Indication: DEPRESSION
     Dosage: 100MG - 500MG
     Route: 048
     Dates: start: 20040101, end: 20070101
  3. SEROQUEL [Suspect]
     Indication: SCHIZOPHRENIA
     Dosage: 100MG - 500MG
     Route: 048
     Dates: start: 20040101, end: 20070101
  4. SEROQUEL [Suspect]
     Indication: BIPOLAR DISORDER
     Dosage: 100MG - 500MG
     Route: 048
     Dates: start: 20040101, end: 20070101

REACTIONS (1)
  - DIABETES MELLITUS [None]
